FAERS Safety Report 7884561-6 (Version None)
Quarter: 2011Q4

REPORT INFORMATION
  Report Type: 
  Country: None (occurrence: None)
  Receive Date: 20111102
  Receipt Date: 20111101
  Transmission Date: 20120403
  Serious: Yes (Hospitalization)
  Sender: FDA-Public Use
  Company Number: DK-BRISTOL-MYERS SQUIBB COMPANY-16079956

PATIENT

DRUGS (1)
  1. ABILIFY [Suspect]

REACTIONS (2)
  - SUICIDAL IDEATION [None]
  - PSYCHOTIC DISORDER [None]
